FAERS Safety Report 12830614 (Version 1)
Quarter: 2016Q4

REPORT INFORMATION
  Report Type: Spontaneous
  Country: US (occurrence: US)
  Receive Date: 20161007
  Receipt Date: 20161007
  Transmission Date: 20170207
  Serious: Yes (Other)
  Sender: FDA-Public Use
  Company Number: US-SANOFI-AVENTIS-2013SA053288

PATIENT
  Age: 38 Year
  Sex: Female

DRUGS (4)
  1. AUBAGIO [Suspect]
     Active Substance: TERIFLUNOMIDE
     Indication: MULTIPLE SCLEROSIS
     Route: 048
     Dates: start: 20130429, end: 201305
  2. AUBAGIO [Suspect]
     Active Substance: TERIFLUNOMIDE
     Indication: MULTIPLE SCLEROSIS
     Dosage: PRODUCT END DATE: 2 WEEKS AGO
     Route: 048
     Dates: start: 20130523
  3. AUBAGIO [Suspect]
     Active Substance: TERIFLUNOMIDE
     Indication: MULTIPLE SCLEROSIS
     Dosage: PRODUCT END DATE: 2 WEEKS AGO
     Route: 048
     Dates: start: 20160513
  4. AUBAGIO [Suspect]
     Active Substance: TERIFLUNOMIDE
     Indication: MULTIPLE SCLEROSIS
     Dates: start: 201305, end: 201305

REACTIONS (8)
  - Erythema [Not Recovered/Not Resolved]
  - Pruritus [Not Recovered/Not Resolved]
  - Drug dose omission [Unknown]
  - Fall [Unknown]
  - Skin exfoliation [Not Recovered/Not Resolved]
  - Rash [Not Recovered/Not Resolved]
  - Multiple sclerosis relapse [Unknown]
  - Dry skin [Not Recovered/Not Resolved]

NARRATIVE: CASE EVENT DATE: 20130504
